FAERS Safety Report 10584590 (Version 1)
Quarter: 2014Q4

REPORT INFORMATION
  Report Type: Spontaneous
  Country: FR (occurrence: None)
  Receive Date: 20141112
  Receipt Date: 20141112
  Transmission Date: 20150529
  Serious: Yes (Death, Hospitalization)
  Sender: FDA-Public Use
  Company Number: 201410IM007090

PATIENT
  Age: 77 Year
  Sex: Male
  Weight: 76 kg

DRUGS (8)
  1. CRESTOR [Concomitant]
     Active Substance: ROSUVASTATIN CALCIUM
  2. CORDARONE [Concomitant]
     Active Substance: AMIODARONE HYDROCHLORIDE
  3. PREVISCAN [Concomitant]
     Active Substance: FLUINDIONE
  4. SPIRIVA [Concomitant]
     Active Substance: TIOTROPIUM BROMIDE MONOHYDRATE
  5. ESBRIET [Suspect]
     Active Substance: PIRFENIDONE
     Indication: IDIOPATHIC PULMONARY FIBROSIS
     Route: 048
     Dates: start: 20140922, end: 201409
  6. RAMIPRIL. [Concomitant]
     Active Substance: RAMIPRIL
  7. GLICLAZIDE [Concomitant]
     Active Substance: GLICLAZIDE
  8. LASILIX [Concomitant]
     Active Substance: FUROSEMIDE

REACTIONS (8)
  - Idiopathic pulmonary fibrosis [None]
  - Acute respiratory failure [None]
  - Condition aggravated [None]
  - C-reactive protein increased [None]
  - Infection [None]
  - Hypoxia [None]
  - Tremor [None]
  - Cardiac failure [None]

NARRATIVE: CASE EVENT DATE: 20140924
